FAERS Safety Report 8261844-1 (Version None)
Quarter: 2012Q2

REPORT INFORMATION
  Report Type: 
  Country: None (occurrence: None)
  Receive Date: 20120405
  Receipt Date: 20120329
  Transmission Date: 20120825
  Serious: Yes (Other)
  Sender: FDA-Public Use
  Company Number: US-BIOMARINP-002381

PATIENT
  Sex: Female
  Weight: 110 kg

DRUGS (4)
  1. VIACTIVE CALCIUM [Concomitant]
     Indication: CALCIUM DEFICIENCY
     Route: 048
  2. KUVAN [Suspect]
     Indication: PHENYLKETONURIA
     Route: 048
     Dates: start: 20080201
  3. CAMINO PRO BETTERMILK [Concomitant]
     Indication: PREGNANCY
     Route: 048
  4. VITAMIN AND MINERAL PRENATAL SUPPLEMENT W/ FOLIC ACID CAP [Concomitant]
     Indication: PREGNANCY
     Route: 048

REACTIONS (2)
  - ABORTION SPONTANEOUS [None]
  - MATERNAL EXPOSURE DURING PREGNANCY [None]
